FAERS Safety Report 9552541 (Version 1)
Quarter: 2013Q3

REPORT INFORMATION
  Report Type: Spontaneous
  Country: US (occurrence: None)
  Receive Date: 20130724
  Receipt Date: 20130724
  Transmission Date: 20140515
  Serious: Yes (Hospitalization)
  Sender: FDA-Public Use
  Company Number: PHEH2013US002106

PATIENT
  Age: 61 Year
  Sex: Female

DRUGS (1)
  1. RECLAST (ZOLEDRONATE) SOLUTION FOR INJECTION [Suspect]
     Indication: OSTEOPOROSIS
     Dosage: 5 MG (5MG/100ML), UNK, INTRAVENOUS
     Route: 042
     Dates: start: 201105

REACTIONS (5)
  - Atrial fibrillation [None]
  - Influenza like illness [None]
  - Diarrhoea [None]
  - Dyspepsia [None]
  - Bone pain [None]
